FAERS Safety Report 5967731-3 (Version None)
Quarter: 2008Q4

REPORT INFORMATION
  Report Type: 
  Country: None (occurrence: None)
  Receive Date: 20081126
  Receipt Date: 20081118
  Transmission Date: 20090506
  Serious: Yes (Life-Threatening, Other)
  Sender: FDA-Public Use
  Company Number: US-JNJFOC-20081002096

PATIENT
  Sex: Female
  Weight: 90.72 kg

DRUGS (5)
  1. REMICADE [Suspect]
     Indication: RHEUMATOID ARTHRITIS
     Route: 042
  2. METHOTREXATE [Concomitant]
     Indication: RHEUMATOID ARTHRITIS
  3. TEGRETOL [Concomitant]
     Indication: CONVULSION
  4. BIRTH CONTROL PILL [Concomitant]
     Indication: CONTRACEPTION
  5. FOLGARD [Concomitant]
     Indication: PROPHYLAXIS

REACTIONS (2)
  - DIZZINESS [None]
  - LOSS OF CONSCIOUSNESS [None]
